FAERS Safety Report 10530703 (Version 1)
Quarter: 2014Q4

REPORT INFORMATION
  Report Type: Spontaneous
  Country: US (occurrence: US)
  Receive Date: 20141021
  Receipt Date: 20141021
  Transmission Date: 20150528
  Serious: Yes (Other)
  Sender: FDA-Public Use
  Company Number: US-ACTAVIS-2014-22191

PATIENT
  Age: 11 Year
  Sex: Female

DRUGS (3)
  1. AMIKACIN [Concomitant]
     Active Substance: AMIKACIN
     Indication: MYCOBACTERIUM FORTUITUM INFECTION
     Dosage: UNKNOWN
     Route: 042
  2. CLARITHROMYCIN (UNKNOWN) [Suspect]
     Active Substance: CLARITHROMYCIN
     Indication: MYCOBACTERIUM FORTUITUM INFECTION
     Dosage: UNKNOWN
     Route: 042
  3. AZITHROMYCIN [Suspect]
     Active Substance: AZITHROMYCIN ANHYDROUS
     Indication: IMMUNE TOLERANCE INDUCTION
     Dosage: UNKNOWN
     Route: 048

REACTIONS (3)
  - Urticaria [Recovered/Resolved]
  - Drug hypersensitivity [Recovered/Resolved]
  - Abdominal pain [Recovered/Resolved]
